FAERS Safety Report 4768057-6 (Version None)
Quarter: 2005Q3

REPORT INFORMATION
  Report Type: 
  Country: None (occurrence: None)
  Receive Date: 20050906
  Receipt Date: 20050506
  Transmission Date: 20060218
  Serious: No
  Sender: FDA-Public Use
  Company Number: 2005-BP-07599BP

PATIENT
  Age: 56 Year
  Sex: Male

DRUGS (8)
  1. SPIRIVA [Suspect]
     Indication: ASTHMA
     Dosage: 18 MCG (18 MCG), IH
     Route: 055
     Dates: start: 20050201
  2. SPIRIVA [Suspect]
     Indication: CHRONIC OBSTRUCTIVE PULMONARY DISEASE
     Dosage: 18 MCG (18 MCG), IH
     Route: 055
     Dates: start: 20050201
  3. FORADIL [Concomitant]
  4. ALBUTEROL [Concomitant]
  5. AEROBID [Concomitant]
  6. LISINOPRIL [Concomitant]
  7. VALPROIC ACID [Concomitant]
  8. DICYCLOMINE (DICYCLOVERINE) [Concomitant]

REACTIONS (2)
  - DRUG INEFFECTIVE [None]
  - DRY MOUTH [None]
